FAERS Safety Report 5501946-3 (Version None)
Quarter: 2007Q4

REPORT INFORMATION
  Report Type: 
  Country: None (occurrence: None)
  Receive Date: 20071030
  Receipt Date: 20071019
  Transmission Date: 20080405
  Serious: Yes (Hospitalization, Other)
  Sender: FDA-Public Use
  Company Number: US-ROCHE-433861

PATIENT
  Age: 27 Year
  Sex: Male
  Weight: 79.4 kg

DRUGS (1)
  1. ACCUTANE [Suspect]
     Indication: ACNE
     Route: 048
     Dates: start: 19961001, end: 19961101

REACTIONS (20)
  - ANAEMIA [None]
  - COLITIS [None]
  - COLITIS ULCERATIVE [None]
  - CROHN'S DISEASE [None]
  - DEPRESSION [None]
  - DYSPEPSIA [None]
  - HEPATIC ENZYME INCREASED [None]
  - ILEUS [None]
  - ILEUS PARALYTIC [None]
  - INFLAMMATORY BOWEL DISEASE [None]
  - INSOMNIA [None]
  - INTESTINAL HAEMORRHAGE [None]
  - IRRITABLE BOWEL SYNDROME [None]
  - MALNUTRITION [None]
  - MEGACOLON [None]
  - PROCTITIS [None]
  - PSEUDOPOLYP [None]
  - SKIN FISSURES [None]
  - THROMBOCYTHAEMIA [None]
  - WEIGHT DECREASED [None]
